FAERS Safety Report 8547501-2 (Version None)
Quarter: 2012Q3

REPORT INFORMATION
  Report Type: 
  Country: None (occurrence: None)
  Receive Date: 20120727
  Receipt Date: 20120326
  Transmission Date: 20120928
  Serious: No
  Sender: FDA-Public Use
  Company Number: US-ASTRAZENECA-2012SE20451

PATIENT
  Age: 48 Year
  Sex: Male

DRUGS (3)
  1. SEROQUEL [Suspect]
     Indication: PANIC ATTACK
     Route: 048
  2. SEROQUEL [Suspect]
     Indication: BIPOLAR DISORDER
     Route: 048
  3. SEROQUEL [Suspect]
     Indication: BIPOLAR I DISORDER
     Route: 048

REACTIONS (5)
  - WITHDRAWAL SYNDROME [None]
  - DRUG DOSE OMISSION [None]
  - HEADACHE [None]
  - PANIC ATTACK [None]
  - INSOMNIA [None]
